FAERS Safety Report 8510333-5 (Version None)
Quarter: 2012Q3

REPORT INFORMATION
  Report Type: 
  Country: None (occurrence: None)
  Receive Date: 20120713
  Receipt Date: 20120709
  Transmission Date: 20120928
  Serious: Yes (Other)
  Sender: FDA-Public Use
  Company Number: US-AMGEN-USASP2011037928

PATIENT
  Age: 66 Year
  Sex: Male
  Weight: 78.005 kg

DRUGS (8)
  1. ENBREL [Suspect]
     Indication: RHEUMATOID ARTHRITIS
     Dosage: 50 MG, QWK
     Route: 058
     Dates: start: 20110101, end: 20120101
  2. LISINOPRIL [Concomitant]
     Dosage: 10 MG, QD
  3. CORTICOSTEROIDS [Concomitant]
     Dosage: UNK
  4. ENBREL [Suspect]
     Dosage: 50 MG, QWK
     Route: 058
     Dates: start: 20110801, end: 20110818
  5. NEXIUM [Concomitant]
     Dosage: 40 MG, QD
  6. FLONASE [Concomitant]
     Dosage: UNK UNK, PRN
  7. ENBREL [Suspect]
     Dosage: 50 MG, QWK
     Route: 058
     Dates: start: 20110601, end: 20110801
  8. PREDNISONE [Suspect]
     Indication: RHEUMATOID ARTHRITIS
     Dosage: UNK UNK, QD

REACTIONS (24)
  - DIZZINESS [None]
  - POLYARTHRITIS [None]
  - DIARRHOEA [None]
  - DEPRESSION [None]
  - CARPAL TUNNEL SYNDROME [None]
  - HYPOAESTHESIA [None]
  - VISION BLURRED [None]
  - HAEMANGIOMA [None]
  - SUICIDAL IDEATION [None]
  - RETINAL DETACHMENT [None]
  - BLOOD PRESSURE DECREASED [None]
  - ARTHRALGIA [None]
  - ARTHRITIS [None]
  - HEART RATE INCREASED [None]
  - DRUG ADMINISTRATION ERROR [None]
  - DRUG INEFFECTIVE [None]
  - DISCOMFORT [None]
  - MUSCULOSKELETAL STIFFNESS [None]
  - INFECTION [None]
  - FATIGUE [None]
  - SYNOVITIS [None]
  - CRYSTAL ARTHROPATHY [None]
  - POOR QUALITY SLEEP [None]
  - PAIN [None]
